FAERS Safety Report 10788516 (Version 1)
Quarter: 2015Q1

REPORT INFORMATION
  Report Type: Spontaneous
  Country: US (occurrence: US)
  Receive Date: 20150212
  Receipt Date: 20150212
  Transmission Date: 20150721
  Serious: No
  Sender: FDA-Public Use
  Company Number: US-GLAXOSMITHKLINE-A1088274A

PATIENT

DRUGS (6)
  1. WARFARIN [Concomitant]
     Active Substance: WARFARIN
  2. VITAMIN D [Concomitant]
     Active Substance: CHOLECALCIFEROL
  3. METOPROLOL [Concomitant]
     Active Substance: METOPROLOL
  4. UNKNOWN MEDICATION [Concomitant]
     Active Substance: UNSPECIFIED INGREDIENT
  5. VENTOLIN [Suspect]
     Active Substance: ALBUTEROL SULFATE
     Indication: BRONCHIOLITIS
     Route: 055
  6. GABAPENTIN. [Concomitant]
     Active Substance: GABAPENTIN

REACTIONS (3)
  - Drug administration error [Recovered/Resolved]
  - Drug ineffective [Recovered/Resolved]
  - Dyspnoea [Recovered/Resolved]

NARRATIVE: CASE EVENT DATE: 201409
